FAERS Safety Report 7588840-1 (Version None)
Quarter: 2011Q3

REPORT INFORMATION
  Report Type: 
  Country: None (occurrence: None)
  Receive Date: 20110705
  Receipt Date: 20110624
  Transmission Date: 20111222
  Serious: Yes (Other)
  Sender: FDA-Public Use
  Company Number: JP-JNJFOC-20110603398

PATIENT
  Age: 78 Year
  Sex: Female

DRUGS (11)
  1. UNKNOWN MEDICATION [Suspect]
     Indication: PRODUCT USED FOR UNKNOWN INDICATION
     Route: 065
  2. PRIMPERAN TAB [Concomitant]
     Route: 048
  3. PROCHLORPERAZINE [Suspect]
     Indication: PRODUCT USED FOR UNKNOWN INDICATION
     Route: 065
  4. ETODOLAC [Concomitant]
     Route: 048
  5. PURSENNID [Concomitant]
     Route: 048
  6. FENTANYL-100 [Suspect]
     Indication: CANCER PAIN
     Route: 062
  7. MAGMITT [Concomitant]
     Route: 048
  8. MUCOSTA [Concomitant]
     Route: 048
  9. OXYCONTIN [Suspect]
     Indication: PRODUCT USED FOR UNKNOWN INDICATION
     Route: 048
  10. MORPHINE [Suspect]
     Indication: PRODUCT USED FOR UNKNOWN INDICATION
     Route: 048
  11. LANSOPRAZOLE [Concomitant]
     Route: 048

REACTIONS (1)
  - AGRANULOCYTOSIS [None]
